FAERS Safety Report 11946277 (Version 2)
Quarter: 2016Q1

REPORT INFORMATION
  Report Type: Report from Study
  Country: US (occurrence: US)
  Receive Date: 20160125
  Receipt Date: 20160129
  Transmission Date: 20160526
  Serious: No
  Sender: FDA-Public Use
  Company Number: US-AMGEN-USASL2015135913

PATIENT
  Age: 61 Year
  Sex: Male
  Weight: 95.24 kg

DRUGS (1)
  1. REPATHA [Suspect]
     Active Substance: EVOLOCUMAB
     Indication: DYSLIPIDAEMIA
     Dosage: 140 MG, Q2WK
     Route: 058
     Dates: start: 20151203

REACTIONS (5)
  - Ear infection [Recovering/Resolving]
  - Sinusitis [Recovering/Resolving]
  - Laryngitis [Unknown]
  - Rhinorrhoea [Unknown]
  - Cough [Recovering/Resolving]

NARRATIVE: CASE EVENT DATE: 201512
